FAERS Safety Report 14213144 (Version 1)
Quarter: 2017Q4

REPORT INFORMATION
  Report Type: Spontaneous
  Country: US (occurrence: US)
  Receive Date: 20171122
  Receipt Date: 20171122
  Transmission Date: 20180321
  Serious: Yes (Other)
  Sender: FDA-Public Use
  Company Number: US-SUNOVION-2017SUN001273

PATIENT
  Age: 15 Year

DRUGS (2)
  1. LATUDA [Suspect]
     Active Substance: LURASIDONE HYDROCHLORIDE
     Route: 048
  2. LATUDA [Suspect]
     Active Substance: LURASIDONE HYDROCHLORIDE
     Dosage: UNK
     Route: 048

REACTIONS (24)
  - Feeling abnormal [Unknown]
  - Respiratory rate increased [Unknown]
  - Cardiac disorder [Unknown]
  - Memory impairment [Unknown]
  - Dyskinesia [Unknown]
  - Hypersensitivity [Unknown]
  - Somnolence [Unknown]
  - Tremor [Unknown]
  - Paralysis [Unknown]
  - Affective disorder [Unknown]
  - Hypoaesthesia [Unknown]
  - Fatigue [Unknown]
  - Balance disorder [Unknown]
  - Emotional disorder [Unknown]
  - Headache [Unknown]
  - Restlessness [Unknown]
  - Nervous system disorder [Unknown]
  - Arthritis [Unknown]
  - Bradyphrenia [Unknown]
  - Drug ineffective [Unknown]
  - Irregular breathing [Unknown]
  - Cerebral disorder [Unknown]
  - Paranoia [Unknown]
  - Panic attack [Unknown]

NARRATIVE: CASE EVENT DATE: 20171118
